FAERS Safety Report 23549051 (Version 3)
Quarter: 2024Q2

REPORT INFORMATION
  Report Type: Spontaneous
  Country: CA (occurrence: CA)
  Receive Date: 20240221
  Receipt Date: 20240402
  Transmission Date: 20240717
  Serious: Yes (Other)
  Sender: FDA-Public Use
  Company Number: CA-PFIZER INC-202400045201

PATIENT
  Age: 70 Year
  Sex: Male

DRUGS (4)
  1. METHOTREXATE SODIUM [Suspect]
     Active Substance: METHOTREXATE SODIUM
     Dosage: 7.5 MG, WEEKLY (7.5 MG P.O. WEEKLY)
     Route: 048
     Dates: start: 20240101
  2. HUMIRA [Concomitant]
     Active Substance: ADALIMUMAB
     Dosage: 40 MG, CYCLIC (EVERY 2 WEEKS)
     Route: 058
  3. FOLIC ACID [Concomitant]
     Active Substance: FOLIC ACID
     Indication: Psoriasis
     Dosage: 5 MG, WEEKLY
     Dates: start: 20040101
  4. BETAMETHASONE DIPROPIONATE\CALCIPOTRIENE MONOHYDRATE [Concomitant]
     Active Substance: BETAMETHASONE DIPROPIONATE\CALCIPOTRIENE MONOHYDRATE
     Indication: Psoriasis
     Dosage: 5 MCG 2X/DAY
     Dates: start: 20191212

REACTIONS (2)
  - Road traffic accident [Recovering/Resolving]
  - Ankle fracture [Recovering/Resolving]

NARRATIVE: CASE EVENT DATE: 20240101
